FAERS Safety Report 24009673 (Version 1)
Quarter: 2024Q2

REPORT INFORMATION
  Report Type: Spontaneous
  Country: US (occurrence: US)
  Receive Date: 20240625
  Receipt Date: 20240625
  Transmission Date: 20240716
  Serious: Yes (Death, Other)
  Sender: FDA-Public Use
  Company Number: US-TEVA-VS-3211831

PATIENT
  Age: 68 Year
  Sex: Female

DRUGS (1)
  1. AUSTEDO XR [Suspect]
     Active Substance: DEUTETRABENAZINE
     Indication: Huntington^s disease
     Route: 065
     Dates: start: 2024

REACTIONS (6)
  - Death [Fatal]
  - Screaming [Unknown]
  - Adverse drug reaction [Unknown]
  - Depression [Unknown]
  - Suicidal ideation [Unknown]
  - Crying [Unknown]

NARRATIVE: CASE EVENT DATE: 20240101
